FAERS Safety Report 25785889 (Version 1)
Quarter: 2025Q3

REPORT INFORMATION
  Report Type: Spontaneous
  Country: US (occurrence: None)
  Receive Date: 20250909
  Receipt Date: 20250909
  Transmission Date: 20251021
  Serious: Yes (Death)
  Sender: FDA-CTU
  Company Number: None

PATIENT
  Age: 70 Year
  Sex: Male

DRUGS (12)
  1. COLLAGENASE SANTYL [Suspect]
     Active Substance: COLLAGENASE CLOSTRIDIUM HISTOLYTICUM
     Indication: Diabetic foot
     Dosage: OTHER STRENGTH : 250U/GM ;?FREQUENCY : DAILY;?
     Route: 061
     Dates: start: 20250815, end: 20250904
  2. AMLODIPINE BESYLATE [Concomitant]
     Active Substance: AMLODIPINE BESYLATE
  3. ATORVASTATIN [Concomitant]
     Active Substance: ATORVASTATIN
  4. BASAGLAR 100 U/ML KWIKPEN INJ 3ML [Concomitant]
  5. JARDIANCE [Concomitant]
     Active Substance: EMPAGLIFLOZIN
  6. KERENDIA 10MG TABLETS [Concomitant]
  7. LISINOPRI L-HCTZ 10/12.5MG TABLETS [Concomitant]
  8. METOPROLOL SUCCINATE [Concomitant]
     Active Substance: METOPROLOL SUCCINATE
  9. MOUNJARO 10MG/0.5ML INJ (4 PENS) [Concomitant]
  10. OXYBUTYNIN 5MG TABLETS [Concomitant]
  11. PANTOPRAZOLE [Concomitant]
     Active Substance: PANTOPRAZOLE
  12. TAMSULOSIN [Concomitant]
     Active Substance: TAMSULOSIN

REACTIONS (1)
  - Death [None]

NARRATIVE: CASE EVENT DATE: 20250904
